FAERS Safety Report 8226077-3 (Version None)
Quarter: 2012Q1

REPORT INFORMATION
  Report Type: 
  Country: None (occurrence: None)
  Receive Date: 20120307
  Receipt Date: 20050308
  Transmission Date: 20120608
  Serious: Yes (Hospitalization)
  Sender: FDA-Public Use
  Company Number: ABFLM-05-0183

PATIENT
  Sex: Female

DRUGS (2)
  1. ABRAXANE [Suspect]
     Indication: BREAST CANCER METASTATIC
     Dosage: DRUG REDUCED TO 220 MG/M2, IVD
     Route: 041
     Dates: start: 20050217, end: 20050217
  2. GLUTOFAC (GLUTOFAC) [Concomitant]

REACTIONS (3)
  - STOMATITIS [None]
  - NEUTROPENIA [None]
  - RASH [None]
